FAERS Safety Report 25099609 (Version 1)
Quarter: 2025Q1

REPORT INFORMATION
  Report Type: Report from Study
  Country: NL (occurrence: NL)
  Receive Date: 20250320
  Receipt Date: 20250320
  Transmission Date: 20250409
  Serious: Yes (Other)
  Sender: MYLAN
  Company Number: NL-MYLANLABS-2025M1023189

PATIENT
  Age: 68 Year
  Sex: Female

DRUGS (2)
  1. CETIRIZINE [Suspect]
     Active Substance: CETIRIZINE HYDROCHLORIDE
     Indication: Chemotherapy side effect prophylaxis
  2. PACLITAXEL [Suspect]
     Active Substance: PACLITAXEL
     Indication: Uterine cancer

REACTIONS (2)
  - Hypersensitivity [Unknown]
  - Drug ineffective [Unknown]
